FAERS Safety Report 12621190 (Version 3)
Quarter: 2016Q3

REPORT INFORMATION
  Report Type: Spontaneous
  Country: US (occurrence: US)
  Receive Date: 20160804
  Receipt Date: 20160928
  Transmission Date: 20161109
  Serious: Yes (Other)
  Sender: FDA-Public Use
  Company Number: US-PFIZER INC-2016355155

PATIENT
  Age: 73 Year
  Sex: Male
  Weight: 100 kg

DRUGS (13)
  1. TRIAMTERENE. [Concomitant]
     Active Substance: TRIAMTERENE
     Dosage: UNK
  2. SIMVASTATIN. [Concomitant]
     Active Substance: SIMVASTATIN
     Dosage: UNK
  3. ALLOPURINOL. [Concomitant]
     Active Substance: ALLOPURINOL
     Dosage: UNK
  4. FOLIC ACID. [Concomitant]
     Active Substance: FOLIC ACID
     Dosage: UNK
  5. BABY ASPIRIN [Concomitant]
     Active Substance: ASPIRIN
     Dosage: UNK
  6. DILTIAZEM. [Concomitant]
     Active Substance: DILTIAZEM
     Dosage: UNK
  7. LISINOPRIL. [Concomitant]
     Active Substance: LISINOPRIL
     Dosage: UNK
  8. FISH OIL [Concomitant]
     Active Substance: FISH OIL
     Dosage: UNK
  9. VALSARTAN. [Concomitant]
     Active Substance: VALSARTAN
     Indication: HYPERTENSION
     Dosage: 80 MG, DAILY
     Route: 048
     Dates: start: 2014
  10. SUTENT [Suspect]
     Active Substance: SUNITINIB MALATE
     Indication: RENAL CANCER
     Dosage: 50 MG, CYCLIC (28 DAYS ON/14 DAYS OFF; DAILY, 4 WEEKS ON 2 WEEKS OFF)
     Dates: start: 20160713
  11. SUTENT [Suspect]
     Active Substance: SUNITINIB MALATE
     Indication: RENAL CELL CARCINOMA
     Dosage: 50 MG, DAILY, (4 WEEKS ON 2 WEEKS OFF)
     Route: 048
     Dates: start: 201607
  12. SUTENT [Suspect]
     Active Substance: SUNITINIB MALATE
     Indication: LUNG NEOPLASM MALIGNANT
     Dosage: 50 MG, 1X/DAY
     Route: 048
  13. LEVOTHYROXINE. [Concomitant]
     Active Substance: LEVOTHYROXINE
     Dosage: UNK

REACTIONS (17)
  - Second primary malignancy [Unknown]
  - Dysgeusia [Unknown]
  - Diarrhoea [Unknown]
  - Dyspnoea [Unknown]
  - Lung neoplasm malignant [Unknown]
  - Asthenia [Unknown]
  - Dry skin [Unknown]
  - Decreased appetite [Unknown]
  - Dizziness [Unknown]
  - Malaise [Recovering/Resolving]
  - Blood pressure increased [Unknown]
  - Drug intolerance [Unknown]
  - Skin exfoliation [Unknown]
  - Feeling cold [Unknown]
  - Fatigue [Recovering/Resolving]
  - Abdominal pain [Unknown]
  - Thyroid disorder [Recovering/Resolving]

NARRATIVE: CASE EVENT DATE: 201607
